FAERS Safety Report 5700221-1 (Version None)
Quarter: 2008Q2

REPORT INFORMATION
  Report Type: 
  Country: None (occurrence: None)
  Receive Date: 20080409
  Receipt Date: 20080404
  Transmission Date: 20081010
  Serious: Yes (Hospitalization)
  Sender: FDA-Public Use
  Company Number: GB-JNJFOC-20080401421

PATIENT
  Age: 55 Year
  Sex: Female

DRUGS (3)
  1. RISPERDAL [Suspect]
     Route: 048
  2. RISPERDAL [Suspect]
     Indication: DRUG USE FOR UNKNOWN INDICATION
     Route: 048
  3. FLUOXETINE [Suspect]
     Indication: DRUG USE FOR UNKNOWN INDICATION

REACTIONS (5)
  - BLOOD POTASSIUM DECREASED [None]
  - BRAIN OEDEMA [None]
  - CONVULSION [None]
  - HYPONATRAEMIA [None]
  - SYNCOPE [None]
